FAERS Safety Report 8183599-1 (Version None)
Quarter: 2012Q1

REPORT INFORMATION
  Report Type: 
  Country: None (occurrence: None)
  Receive Date: 20120305
  Receipt Date: 20120228
  Transmission Date: 20120608
  Serious: No
  Sender: FDA-Public Use
  Company Number: US-PFIZER INC-2012033755

PATIENT
  Sex: Female
  Weight: 65.76 kg

DRUGS (2)
  1. CHANTIX [Suspect]
     Indication: SMOKING CESSATION THERAPY
     Dosage: 0.5 MG, 1X/DAY
     Route: 048
     Dates: start: 20120101, end: 20120101
  2. CHANTIX [Suspect]
     Dosage: UNK
     Route: 048
     Dates: start: 20120101

REACTIONS (2)
  - ABNORMAL DREAMS [None]
  - PAROSMIA [None]
